FAERS Safety Report 4304582-X (Version None)
Quarter: 2004Q1

REPORT INFORMATION
  Report Type: 
  Country: None (occurrence: None)
  Receive Date: 20040224
  Receipt Date: 20040216
  Transmission Date: 20041129
  Serious: Yes (Hospitalization)
  Sender: FDA-Public Use
  Company Number: NL-JNJFOC-20031100079

PATIENT
  Age: 67 Year
  Sex: Female

DRUGS (10)
  1. REMICADE [Suspect]
     Indication: RHEUMATOID ARTHRITIS
     Dosage: 10 MG/KG INTRAVENOUS
     Route: 042
     Dates: start: 20020606, end: 20030619
  2. FOLIC ACID [Concomitant]
  3. APROVEL (IRBESARTAN) [Concomitant]
  4. TRAMADOL HCL [Concomitant]
  5. PYRAZINAMIDE [Concomitant]
  6. PYRIDOXINE HCL TAB [Concomitant]
  7. RIFADIN [Concomitant]
  8. ISONIAZID [Concomitant]
  9. MYAMBUTOL [Concomitant]
  10. LEVOTHYROXINE SODIUM [Concomitant]

REACTIONS (6)
  - NIGHT SWEATS [None]
  - PLEURAL EFFUSION [None]
  - PYREXIA [None]
  - RED BLOOD CELL SEDIMENTATION RATE INCREASED [None]
  - TUBERCULOSIS [None]
  - WEIGHT DECREASED [None]
